FAERS Safety Report 7909424-9 (Version None)
Quarter: 2011Q4

REPORT INFORMATION
  Report Type: 
  Country: None (occurrence: None)
  Receive Date: 20111111
  Receipt Date: 20111102
  Transmission Date: 20120403
  Serious: Yes (Other)
  Sender: FDA-Public Use
  Company Number: FR-EISAI INC-E3810-05071-SPO-FR

PATIENT
  Sex: Male

DRUGS (6)
  1. CLONAZEPAM [Suspect]
     Route: 048
     Dates: start: 20101218, end: 20101220
  2. RABEPRAZOLE SODIUM [Suspect]
     Route: 048
     Dates: start: 20101218, end: 20101220
  3. SPAGULAX [Suspect]
     Dosage: UNKNOWN
     Route: 048
     Dates: start: 20101218, end: 20101220
  4. AMBROXOL HYDROCHLORIDE [Suspect]
     Dosage: UNKNOWN
     Dates: start: 20101218, end: 20101220
  5. ACETAMINOPHEN AND TRAMADOL HCL [Suspect]
     Dates: start: 20101218, end: 20101220
  6. OFLOXACIN [Suspect]
     Route: 048
     Dates: start: 20101218, end: 20101220

REACTIONS (2)
  - DYSPNOEA [None]
  - BACK PAIN [None]
